FAERS Safety Report 6305215-3 (Version None)
Quarter: 2009Q3

REPORT INFORMATION
  Report Type: 
  Country: None (occurrence: None)
  Receive Date: 20090811
  Receipt Date: 20090731
  Transmission Date: 20100115
  Serious: Yes (Death)
  Sender: FDA-Public Use
  Company Number: US-KINGPHARMUSA00001-K200900928

PATIENT

DRUGS (1)
  1. THROMBIN NOS [Suspect]

REACTIONS (2)
  - DEATH [None]
  - FACTOR V INHIBITION [None]
